FAERS Safety Report 6528235-2 (Version None)
Quarter: 2010Q1

REPORT INFORMATION
  Report Type: 
  Country: None (occurrence: None)
  Receive Date: 20100106
  Receipt Date: 20091225
  Transmission Date: 20100710
  Serious: Yes (Death)
  Sender: FDA-Public Use
  Company Number: JP-BAYER-200915370BYL

PATIENT
  Age: 64 Year
  Sex: Male

DRUGS (3)
  1. NEXAVAR [Suspect]
     Indication: RENAL CELL CARCINOMA
     Dosage: TOTAL DAILY DOSE: 200 MG  UNIT DOSE: 200 MG
     Route: 048
     Dates: start: 20081008
  2. NEXAVAR [Suspect]
     Dosage: UNIT DOSE: 200 MG
     Route: 048
  3. NEXAVAR [Suspect]
     Dosage: TOTAL DAILY DOSE: 800 MG  UNIT DOSE: 200 MG
     Route: 048
     Dates: start: 20081028

REACTIONS (13)
  - ANAEMIA [None]
  - BLOOD AMYLASE INCREASED [None]
  - DIARRHOEA [None]
  - DYSPHONIA [None]
  - EPISTAXIS [None]
  - HYPERTENSION [None]
  - HYPOTHYROIDISM [None]
  - INTERSTITIAL LUNG DISEASE [None]
  - LIPASE INCREASED [None]
  - MALAISE [None]
  - PALMAR-PLANTAR ERYTHRODYSAESTHESIA SYNDROME [None]
  - PLATELET COUNT DECREASED [None]
  - RASH [None]
